FAERS Safety Report 23321969 (Version 4)
Quarter: 2024Q4

REPORT INFORMATION
  Report Type: Report from Study
  Country: US (occurrence: US)
  Receive Date: 20231220
  Receipt Date: 20241204
  Transmission Date: 20250115
  Serious: No
  Sender: DECIPHERA PHARMACEUTICALS
  Company Number: US-DECIPHERA PHARMACEUTICALS LLC-2023US001104

PATIENT
  Age: 83 Year
  Sex: Female

DRUGS (3)
  1. QINLOCK [Suspect]
     Active Substance: RIPRETINIB
     Indication: Gastrointestinal stromal tumour
     Dosage: UNK
     Route: 048
  2. QINLOCK [Suspect]
     Active Substance: RIPRETINIB
     Dosage: TAKEN UNKNOWN DOSE FOR ALMOST 1 YEAR
     Route: 048
     Dates: start: 20211013
  3. QINLOCK [Suspect]
     Active Substance: RIPRETINIB
     Dosage: 100 MILLIGRAM, QD
     Route: 048
     Dates: start: 20231213

REACTIONS (6)
  - Bronchitis [Unknown]
  - Muscular weakness [Unknown]
  - Arthritis [Unknown]
  - Pain in extremity [Unknown]
  - Product distribution issue [Unknown]
  - Underdose [Unknown]
